FAERS Safety Report 25368433 (Version 1)
Quarter: 2025Q2

REPORT INFORMATION
  Report Type: Spontaneous
  Country: US (occurrence: None)
  Receive Date: 20250527
  Receipt Date: 20250527
  Transmission Date: 20250716
  Serious: Yes (Disabling)
  Sender: FDA-CTU
  Company Number: None

PATIENT
  Age: 39 Year
  Sex: Female

DRUGS (1)
  1. WITCH HAZEL [Suspect]
     Active Substance: WITCH HAZEL

REACTIONS (5)
  - Pain in jaw [None]
  - Pain of skin [None]
  - Muscle spasms [None]
  - Neuralgia [None]
  - Migraine [None]
